FAERS Safety Report 14281841 (Version 2)
Quarter: 2017Q4

REPORT INFORMATION
  Report Type: Spontaneous
  Country: US (occurrence: US)
  Receive Date: 20171213
  Receipt Date: 20171219
  Transmission Date: 20180321
  Serious: No
  Sender: FDA-Public Use
  Company Number: US-PFIZER INC-2017530684

PATIENT
  Sex: Female

DRUGS (1)
  1. IBRANCE [Suspect]
     Active Substance: PALBOCICLIB
     Dosage: 125 MG, CYCLIC (125 MG, ONCE A DAY FOR 21 DAYS AND THEN OFF FOR 7 DAYS)
     Dates: start: 20161021

REACTIONS (2)
  - Product storage error [Unknown]
  - Poor quality drug administered [Unknown]
